FAERS Safety Report 9422268 (Version 1)
Quarter: 2013Q3

REPORT INFORMATION
  Report Type: Spontaneous
  Country: IL (occurrence: IL)
  Receive Date: 20130726
  Receipt Date: 20130726
  Transmission Date: 20140515
  Serious: Yes (Other)
  Sender: FDA-Public Use
  Company Number: IL-ROCHE-1252095

PATIENT
  Sex: Female

DRUGS (13)
  1. MABTHERA [Suspect]
     Indication: DIFFUSE LARGE B-CELL LYMPHOMA
     Route: 065
     Dates: start: 20080513
  2. MABTHERA [Suspect]
     Route: 065
     Dates: start: 20080520
  3. MABTHERA [Suspect]
     Route: 065
     Dates: start: 20080603
  4. MABTHERA [Suspect]
     Route: 065
     Dates: start: 20080617
  5. MABTHERA [Suspect]
     Route: 065
     Dates: start: 20080701
  6. MABTHERA [Suspect]
     Route: 065
     Dates: start: 20080715
  7. MABTHERA [Suspect]
     Route: 065
     Dates: start: 20080728
  8. MABTHERA [Suspect]
     Route: 065
     Dates: start: 20080811
  9. MABTHERA [Suspect]
     Route: 065
     Dates: end: 20100705
  10. CYCLOPHOSPHAMIDE [Concomitant]
  11. DOXORUBICIN [Concomitant]
  12. VINCRISTINE [Concomitant]
  13. PREDNISONE [Concomitant]

REACTIONS (2)
  - Malignant melanoma [Unknown]
  - VIIth nerve paralysis [Recovered/Resolved]
